FAERS Safety Report 8586504 (Version 3)
Quarter: 2013Q1

REPORT INFORMATION
  Report Type: Spontaneous
  Country: US (occurrence: US)
  Receive Date: 20120530
  Receipt Date: 20130305
  Transmission Date: 20140127
  Serious: Yes (Hospitalization)
  Sender: FDA-Public Use
  Company Number: US-GLAXOSMITHKLINE-A0979214A

PATIENT
  Age: 73 Year
  Sex: Female

DRUGS (5)
  1. FLOLAN [Suspect]
     Indication: PRODUCT USED FOR UNKNOWN INDICATION
     Dosage: 29.6NGKM CONTINUOUS
     Route: 042
     Dates: start: 20070615
  2. REVATIO [Concomitant]
  3. DIGOXIN [Concomitant]
  4. WARFARIN [Concomitant]
  5. SPIRONOLACTONE [Concomitant]

REACTIONS (2)
  - Fluid retention [Unknown]
  - Eye infection [Unknown]
